FAERS Safety Report 7733956-X (Version None)
Quarter: 2011Q3

REPORT INFORMATION
  Report Type: 
  Country: None (occurrence: None)
  Receive Date: 20110901
  Receipt Date: 20110805
  Transmission Date: 20111222
  Serious: Yes (Hospitalization, Other)
  Sender: FDA-Public Use
  Company Number: BR11-181-AE

PATIENT
  Age: 82 Year
  Sex: Male
  Weight: 88.4514 kg

DRUGS (1)
  1. SPIRONOLACTONE TABLETS, USP 25 MG (AMNEAL) [Suspect]
     Indication: PRODUCT USED FOR UNKNOWN INDICATION
     Dosage: 1 TABLET, DAILY, ORAL
     Route: 048
     Dates: start: 20070101

REACTIONS (6)
  - ASTHENIA [None]
  - PRODUCT QUALITY ISSUE [None]
  - SINUS DISORDER [None]
  - HYPERSENSITIVITY [None]
  - COUGH [None]
  - DYSPNOEA [None]
